FAERS Safety Report 6723500-8 (Version None)
Quarter: 2010Q2

REPORT INFORMATION
  Report Type: 
  Country: None (occurrence: None)
  Receive Date: 20100513
  Receipt Date: 20100505
  Transmission Date: 20101027
  Serious: Yes (Disabling)
  Sender: FDA-Public Use
  Company Number: ZA-ALLERGAN-1005884US

PATIENT
  Age: 63 Year
  Sex: Female

DRUGS (2)
  1. RESTASIS [Suspect]
     Indication: DRY EYE
     Dosage: 1 GTT, BID
     Route: 047
     Dates: start: 20100410, end: 20100416
  2. REFRESH LIQUIGEL [Concomitant]
     Indication: DRY EYE

REACTIONS (3)
  - CONJUNCTIVAL OEDEMA [None]
  - DERMATITIS CONTACT [None]
  - PERIORBITAL OEDEMA [None]
